FAERS Safety Report 24216194 (Version 1)
Quarter: 2024Q3

REPORT INFORMATION
  Report Type: Spontaneous
  Country: ES (occurrence: ES)
  Receive Date: 20240816
  Receipt Date: 20240816
  Transmission Date: 20241016
  Serious: Yes (Death, Hospitalization, Other)
  Sender: AUROBINDO
  Company Number: ES-AEMPS-1556353

PATIENT
  Age: 72 Year
  Sex: Female

DRUGS (3)
  1. CEFUROXIME [Suspect]
     Active Substance: CEFUROXIME
     Indication: Urinary tract infection
     Dosage: 500 MILLIGRAM, TWO TIMES A DAY (1-0-1)
     Route: 048
     Dates: start: 20240402, end: 20240411
  2. CEFIXIME [Suspect]
     Active Substance: CEFIXIME
     Indication: Urinary tract infection
     Dosage: 200 MILLIGRAM, TWO TIMES A DAY (1-0-1)
     Route: 048
     Dates: start: 20240402, end: 20240408
  3. NITROFURANTOIN [Suspect]
     Active Substance: NITROFURANTOIN
     Indication: Urinary tract infection
     Dosage: 100 MILLIGRAM, TWO TIMES A DAY (2-0-2)
     Route: 048
     Dates: start: 20240416, end: 20240420

REACTIONS (2)
  - Hepatic cytolysis [Fatal]
  - Hepatic failure [Fatal]

NARRATIVE: CASE EVENT DATE: 20240601
